FAERS Safety Report 4740412-X (Version None)
Quarter: 2005Q3

REPORT INFORMATION
  Report Type: 
  Country: None (occurrence: None)
  Receive Date: 20050810
  Receipt Date: 20050805
  Transmission Date: 20060218
  Serious: Yes (Death)
  Sender: FDA-Public Use
  Company Number: 2005UW11726

PATIENT
  Age: 83 Year
  Sex: Male

DRUGS (1)
  1. CASODEX [Suspect]
     Indication: PROSTATE CANCER
     Route: 048
     Dates: start: 20010101, end: 20050301

REACTIONS (2)
  - CARDIAC DISORDER [None]
  - HEART RATE INCREASED [None]
